FAERS Safety Report 26174723 (Version 1)
Quarter: 2025Q4

REPORT INFORMATION
  Report Type: Spontaneous
  Country: US (occurrence: US)
  Receive Date: 20251218
  Receipt Date: 20251218
  Transmission Date: 20260118
  Serious: Yes (Other)
  Sender: MACLEODS
  Company Number: US-CHEPLA-2025005064

PATIENT

DRUGS (1)
  1. QUETIAPINE [Suspect]
     Active Substance: QUETIAPINE
     Indication: Sleep disorder

REACTIONS (4)
  - Electrocardiogram ST segment elevation [Recovered/Resolved]
  - Overdose [Unknown]
  - Dizziness [Unknown]
  - Fall [Unknown]
